FAERS Safety Report 13579187 (Version 1)
Quarter: 2017Q2

REPORT INFORMATION
  Report Type: Spontaneous
  Country: GB (occurrence: GB)
  Receive Date: 20170525
  Receipt Date: 20170525
  Transmission Date: 20170830
  Serious: Yes (Hospitalization, Other)
  Sender: FDA-Public Use
  Company Number: PHFR2017GB003662

PATIENT
  Age: 58 Year
  Sex: Female

DRUGS (1)
  1. PAZOPANIB [Suspect]
     Active Substance: PAZOPANIB
     Indication: PRODUCT USED FOR UNKNOWN INDICATION
     Dosage: UNK
     Route: 065
     Dates: start: 201612

REACTIONS (4)
  - Subdural haematoma [Unknown]
  - Bone marrow tumour cell infiltration [Unknown]
  - Thrombocytopenia [Not Recovered/Not Resolved]
  - Thrombotic microangiopathy [Unknown]
